FAERS Safety Report 24774586 (Version 2)
Quarter: 2025Q1

REPORT INFORMATION
  Report Type: Spontaneous
  Country: EG (occurrence: EG)
  Receive Date: 20241226
  Receipt Date: 20250106
  Transmission Date: 20250408
  Serious: Yes (Life-Threatening, Hospitalization, Disabling, Other)
  Sender: NOVO NORDISK
  Company Number: EG-NOVOPROD-1337790

PATIENT
  Age: 605 Month
  Sex: Female
  Weight: 70 kg

DRUGS (10)
  1. ERASTAPEX TRIO [Concomitant]
     Indication: Hypertension
     Route: 048
  2. GAPTIN [Concomitant]
     Indication: Nervous system disorder
     Route: 048
  3. CEPHALEXIN [Concomitant]
     Active Substance: CEPHALEXIN
     Indication: Arthritis
     Route: 042
  4. BENFOTIAMINE\CYANOCOBALAMIN\PYRIDOXINE HYDROCHLORIDE [Concomitant]
     Active Substance: BENFOTIAMINE\CYANOCOBALAMIN\PYRIDOXINE HYDROCHLORIDE
     Indication: Nervous system disorder
     Route: 048
  5. BECOZYME [BIOTIN;CALCIUM PANTOTHENATE;CYANOCOBALAMIN;NICOTINAMIDE;PYRI [Concomitant]
     Indication: Vitamin supplementation
     Route: 030
  6. NOVORAPID [Suspect]
     Active Substance: INSULIN ASPART
     Indication: Type 2 diabetes mellitus
     Route: 058
  7. RELAXON [CHLORZOXAZONE;PARACETAMOL] [Concomitant]
     Indication: Muscle spasms
     Route: 048
  8. CELEBREX [Concomitant]
     Active Substance: CELECOXIB
     Indication: Inflammation
     Route: 048
  9. CELEBREX [Concomitant]
     Active Substance: CELECOXIB
     Indication: Muscle spasms
  10. CEREBROLYSIN [Concomitant]
     Active Substance: CEREBROLYSIN
     Indication: Peripheral vascular disorder
     Route: 042

REACTIONS (5)
  - Cerebrovascular accident [Not Recovered/Not Resolved]
  - Intervertebral disc protrusion [Not Recovered/Not Resolved]
  - Intervertebral disc protrusion [Not Recovered/Not Resolved]
  - Atrial fibrillation [Unknown]
  - Atrial flutter [Unknown]

NARRATIVE: CASE EVENT DATE: 20241111
